FAERS Safety Report 10232991 (Version 1)
Quarter: 2014Q2

REPORT INFORMATION
  Report Type: Spontaneous
  Country: US (occurrence: None)
  Receive Date: 20140611
  Receipt Date: 20140611
  Transmission Date: 20141212
  Serious: Yes (Hospitalization)
  Sender: FDA-Public Use
  Company Number: None

PATIENT
  Age: 13 Year
  Sex: Male
  Weight: 38.4 kg

DRUGS (1)
  1. CEFTRIAXONE [Suspect]
     Indication: PYREXIA
     Route: 042
     Dates: start: 20140606, end: 20140606

REACTIONS (5)
  - Urticaria [None]
  - Pruritus [None]
  - Drooling [None]
  - Dysphagia [None]
  - Dysphonia [None]
